FAERS Safety Report 8622221-4 (Version None)
Quarter: 2012Q3

REPORT INFORMATION
  Report Type: 
  Country: None (occurrence: None)
  Receive Date: 20120827
  Receipt Date: 20120821
  Transmission Date: 20120928
  Serious: Yes (Other)
  Sender: FDA-Public Use
  Company Number: NL-AMGEN-NLDSP2012053191

PATIENT
  Age: 47 Year
  Sex: Female

DRUGS (7)
  1. ANTINEOPLASTIC AGENTS [Concomitant]
     Indication: BREAST CANCER
  2. ACETAMINOPHEN [Concomitant]
  3. METOCLOPRAMIDE [Concomitant]
  4. DEXAMETHASONE [Concomitant]
  5. NEULASTA [Suspect]
     Indication: CHEMOTHERAPY
     Dosage: 6 MG, Q3WK
     Route: 058
     Dates: start: 20120731
  6. EMEND [Concomitant]
  7. CIPROFLOXACIN HCL [Concomitant]

REACTIONS (2)
  - MUSCULOSKELETAL DISORDER [None]
  - BONE PAIN [None]
